FAERS Safety Report 8758293 (Version 2)
Quarter: 2012Q4

REPORT INFORMATION
  Report Type: 
  Country: US (occurrence: US)
  Receive Date: 20120829
  Receipt Date: 20120829
  Transmission Date: 20130627
  Serious: Yes (Hospitalization)
  Sender: FDA-Public Use
  Company Number: US-BAYER-2012-079110

PATIENT
  Age: 66 Year
  Sex: Female
  Weight: 94 kg

DRUGS (4)
  1. SORAFENIB [Suspect]
     Indication: CHRONIC LYMPHOCYTIC LEUKAEMIA
     Dosage: 400 mg, BID
     Dates: start: 20120614, end: 20120720
  2. BACTRIM DS [Concomitant]
     Dosage: 160 mg, BID, on Tuesdays and Thursdays
     Route: 048
     Dates: start: 20120612
  3. VALTREX [Concomitant]
     Dosage: 500 mg, QD
     Route: 048
     Dates: start: 20120612
  4. PREDNISONE [Concomitant]
     Dosage: UNK
     Dates: start: 201204

REACTIONS (3)
  - Fungal abscess central nervous system [None]
  - Brain abscess [None]
  - Loss of consciousness [None]
